FAERS Safety Report 8947130 (Version 1)
Quarter: 2012Q4

REPORT INFORMATION
  Report Type: 
  Country: US (occurrence: US)
  Receive Date: 20121205
  Receipt Date: 20121205
  Transmission Date: 20130627
  Serious: No
  Sender: FDA-Public Use
  Company Number: US-PFIZER INC-2012303364

PATIENT
  Age: 63 Year
  Sex: Female

DRUGS (3)
  1. ADVIL [Suspect]
     Indication: STRESS
     Dosage: UNK
     Route: 048
  2. ADVIL [Suspect]
     Indication: SLEEP DIFFICULT
     Dosage: UNK, as needed
     Route: 048
     Dates: start: 201211, end: 2012
  3. ADVIL [Suspect]
     Indication: FEELING ABNORMAL

REACTIONS (5)
  - Off label use [Unknown]
  - Poor quality drug administered [Unknown]
  - Malaise [Unknown]
  - Weight fluctuation [Unknown]
  - Product closure issue [Unknown]
